FAERS Safety Report 24050432 (Version 1)
Quarter: 2024Q3

REPORT INFORMATION
  Report Type: Spontaneous
  Country: JP (occurrence: JP)
  Receive Date: 20240704
  Receipt Date: 20240704
  Transmission Date: 20241017
  Serious: Yes (Other)
  Sender: UCB
  Company Number: JP-UCBJ-CD202405978UCBPHAPROD

PATIENT
  Age: 6 Decade

DRUGS (1)
  1. BIMZELX [Suspect]
     Active Substance: BIMEKIZUMAB-BKZX
     Indication: Psoriasis
     Dosage: 320 MILLIGRAM, EV 4 WEEKS
     Route: 058
     Dates: start: 20240501

REACTIONS (1)
  - Oesophageal candidiasis [Unknown]

NARRATIVE: CASE EVENT DATE: 20240601
